FAERS Safety Report 5295124-3 (Version None)
Quarter: 2007Q2

REPORT INFORMATION
  Report Type: 
  Country: None (occurrence: None)
  Receive Date: 20070412
  Receipt Date: 20070319
  Transmission Date: 20071010
  Serious: Yes (Other)
  Sender: FDA-Public Use
  Company Number: FR-SANOFI-SYNTHELABO-A02200701002

PATIENT
  Age: 39 Year
  Sex: Female

DRUGS (2)
  1. TAXOL [Suspect]
     Indication: OVARIAN CANCER
     Route: 042
     Dates: start: 20070105, end: 20070105
  2. ELOXATIN [Suspect]
     Indication: OVARIAN CANCER
     Route: 042
     Dates: start: 20070105, end: 20070105

REACTIONS (2)
  - LARYNGOSPASM [None]
  - MALAISE [None]
